FAERS Safety Report 9454890 (Version 1)
Quarter: 2013Q3

REPORT INFORMATION
  Report Type: Report from Study
  Country: US (occurrence: US)
  Receive Date: 20130813
  Receipt Date: 20130813
  Transmission Date: 20140515
  Serious: Yes (Other)
  Sender: FDA-Public Use
  Company Number: US-ROCHE-1257070

PATIENT
  Sex: Female
  Weight: 95.34 kg

DRUGS (6)
  1. AVASTIN [Suspect]
     Indication: DIABETIC RETINAL OEDEMA
     Route: 050
     Dates: start: 2012, end: 2012
  2. AVASTIN [Suspect]
     Indication: OFF LABEL USE
  3. LANTUS [Concomitant]
     Indication: DIABETES MELLITUS
     Dosage: 22-23 UNITS, IN MORNING AND NIGHT
     Route: 065
     Dates: start: 2005
  4. NOVOLOG [Concomitant]
     Indication: DIABETES MELLITUS
     Dosage: SLIDING SCALE, INSULIN
     Route: 065
  5. ATENOLOL [Concomitant]
     Indication: HYPERTENSION
     Route: 048
  6. LOSARTAN [Concomitant]
     Indication: HYPERTENSION
     Route: 048
     Dates: start: 2012

REACTIONS (3)
  - Cataract [Unknown]
  - Hypertension [Unknown]
  - Gastric disorder [Unknown]
